FAERS Safety Report 16691703 (Version 1)
Quarter: 2019Q3

REPORT INFORMATION
  Report Type: Spontaneous
  Country: US (occurrence: US)
  Receive Date: 20190625
  Receipt Date: 20190625
  Transmission Date: 20191004
  Serious: No
  Sender: FDA-Public Use
  Company Number: None

PATIENT
  Age: 59 Year
  Sex: Male
  Weight: 73.48 kg

DRUGS (4)
  1. ZYPREXA [Suspect]
     Active Substance: OLANZAPINE
     Indication: BIPOLAR DISORDER
     Dosage: ?          QUANTITY:2.5 MG MILLIGRAM(S);?
     Route: 048
     Dates: start: 1996, end: 201201
  2. ZYPREXA [Suspect]
     Active Substance: OLANZAPINE
     Indication: SCHIZOPHRENIA
     Dosage: ?          QUANTITY:2.5 MG MILLIGRAM(S);?
     Route: 048
     Dates: start: 1996, end: 201201
  3. STELAZINE [Concomitant]
     Active Substance: TRIFLUOPERAZINE HYDROCHLORIDE
  4. HERBAL TEA [Concomitant]

REACTIONS (5)
  - Peyronie^s disease [None]
  - Erectile dysfunction [None]
  - Delirium [None]
  - Type 2 diabetes mellitus [None]
  - Amnesia [None]
